FAERS Safety Report 7192618-0 (Version None)
Quarter: 2010Q4

REPORT INFORMATION
  Report Type: 
  Country: None (occurrence: None)
  Receive Date: 20101223
  Receipt Date: 20100826
  Transmission Date: 20110411
  Serious: No
  Sender: FDA-Public Use
  Company Number: US-AMGEN-TCS434135

PATIENT

DRUGS (2)
  1. ENBREL [Suspect]
     Indication: PSORIATIC ARTHROPATHY
     Dosage: 50 MG, 2 TIMES/WK
     Dates: start: 20100301
  2. METHOTREXATE [Concomitant]
     Dosage: UNK UNK, 4 TIMES/WK

REACTIONS (5)
  - DRUG EFFECT DECREASED [None]
  - PAIN OF SKIN [None]
  - SKIN DISCOLOURATION [None]
  - SKIN DISORDER [None]
  - STRESS [None]
